FAERS Safety Report 18972459 (Version 2)
Quarter: 2021Q3

REPORT INFORMATION
  Report Type: Spontaneous
  Country: JP (occurrence: JP)
  Receive Date: 20210305
  Receipt Date: 20210715
  Transmission Date: 20211014
  Serious: Yes (Hospitalization, Other)
  Sender: FDA-Public Use
  Company Number: NVSJ2021JP003074

PATIENT
  Sex: Female

DRUGS (1)
  1. EQUMET [Suspect]
     Active Substance: METFORMIN HYDROCHLORIDE\VILDAGLIPTIN
     Indication: TYPE 2 DIABETES MELLITUS
     Dosage: 1DF: METFORMIN HYDROCHLORIDE UNK/VILDAGLIPTIN 50MG, UNK
     Route: 048

REACTIONS (3)
  - Abdominal pain [Recovered/Resolved]
  - Intestinal obstruction [Recovered/Resolved]
  - Intestinal angioedema [Recovered/Resolved]

NARRATIVE: CASE EVENT DATE: 20201203
